FAERS Safety Report 17086812 (Version 1)
Quarter: 2019Q4

REPORT INFORMATION
  Report Type: Spontaneous
  Country: US (occurrence: US)
  Receive Date: 20191031
  Receipt Date: 20191031
  Transmission Date: 20200122
  Serious: Yes (Hospitalization)
  Sender: FDA-Public Use
  Company Number: None

PATIENT
  Age: 77 Year
  Sex: Male

DRUGS (1)
  1. APIXABAN [Suspect]
     Active Substance: APIXABAN
     Indication: ATRIAL FIBRILLATION
     Route: 048
     Dates: start: 20180101, end: 20190923

REACTIONS (5)
  - Brain midline shift [None]
  - Cerebral haemorrhage [None]
  - Transfusion [None]
  - Hypertensive urgency [None]
  - Cerebral haematoma [None]

NARRATIVE: CASE EVENT DATE: 20190923
